FAERS Safety Report 21217724 (Version 3)
Quarter: 2022Q3

REPORT INFORMATION
  Report Type: Report from Study
  Country: CA (occurrence: CA)
  Receive Date: 20220816
  Receipt Date: 20220907
  Transmission Date: 20221027
  Serious: Yes (Other)
  Sender: FDA-Public Use
  Company Number: CA-REGENERON PHARMACEUTICALS, INC.-2022-104286

PATIENT
  Age: 43 Year
  Sex: Male

DRUGS (7)
  1. EVINACUMAB [Suspect]
     Active Substance: EVINACUMAB
     Indication: Pancreatitis acute
     Dosage: 20 MG/KG, Q4W ((+/-4 DAYS)
     Route: 042
  2. INVOKANA [Concomitant]
     Active Substance: CANAGLIFLOZIN
     Indication: Diabetes mellitus
     Dosage: 300 MG
     Route: 048
     Dates: start: 202109
  3. ROSUVASTATIN [Concomitant]
     Active Substance: ROSUVASTATIN
     Indication: Hypertriglyceridaemia
     Dosage: 10 MG
     Route: 048
     Dates: start: 20120315
  4. TELMISARTAN [Concomitant]
     Active Substance: TELMISARTAN
     Indication: Hypertension
     Dosage: 40 MG
     Route: 048
     Dates: start: 2017
  5. FENOFIBRATE [Concomitant]
     Active Substance: FENOFIBRATE
     Indication: Hypertriglyceridaemia
     Dosage: 145 MG
     Route: 048
     Dates: start: 20210926
  6. METFORMIN [Concomitant]
     Active Substance: METFORMIN HYDROCHLORIDE
     Indication: Diabetes mellitus
     Dosage: 2000 MG
     Route: 048
     Dates: start: 2003
  7. MCT OIL [MEDIUM-CHAIN TRIGLYCERIDES] [Concomitant]
     Indication: Hypertriglyceridaemia
     Dosage: 16 ML
     Route: 048
     Dates: start: 20211018

REACTIONS (1)
  - Anaphylactic reaction [Recovered/Resolved]

NARRATIVE: CASE EVENT DATE: 20220808
